FAERS Safety Report 19534376 (Version 1)
Quarter: 2021Q3

REPORT INFORMATION
  Report Type: Spontaneous
  Country: CN (occurrence: CN)
  Receive Date: 20210713
  Receipt Date: 20210713
  Transmission Date: 20211014
  Serious: Yes (Hospitalization, Other)
  Sender: FDA-Public Use
  Company Number: CN-PFIZER INC-2021822871

PATIENT
  Age: 49 Year
  Sex: Female
  Weight: 51 kg

DRUGS (1)
  1. DALTEPARIN SODIUM [Suspect]
     Active Substance: DALTEPARIN SODIUM
     Indication: COAGULOPATHY
     Dosage: 0.2 ML, 1X/DAY
     Route: 058
     Dates: start: 20210429, end: 20210508

REACTIONS (3)
  - Off label use [Unknown]
  - Rash [Recovering/Resolving]
  - Rash pruritic [Recovering/Resolving]

NARRATIVE: CASE EVENT DATE: 20210429
